FAERS Safety Report 4869615-0 (Version None)
Quarter: 2005Q4

REPORT INFORMATION
  Report Type: 
  Country: None (occurrence: None)
  Receive Date: 20051223
  Receipt Date: 20051209
  Transmission Date: 20060501
  Serious: Yes (Hospitalization)
  Sender: FDA-Public Use
  Company Number: 2005-DE-05419GD

PATIENT
  Age: 8 Year
  Sex: Male

DRUGS (5)
  1. DILTIAZEM HYDROCHLORIDE [Suspect]
     Indication: CALCINOSIS
     Dosage: 30 MG (TWICE DAILY)
  2. PREDNISONE [Suspect]
     Indication: DERMATOMYOSITIS
     Dosage: 20 MG/5 MG ALTERNATING DAILY, AVERAGING 0.5 MG/KG/D
  3. METHOTREXATE [Suspect]
     Indication: DERMATOMYOSITIS
     Dosage: 15 MG WEEKLY, 0.6 MG/KG
  4. PROBENECID [Suspect]
     Indication: CALCINOSIS
     Dosage: 1000 MG (TWICE DAILY)
  5. FOLIC ACID [Concomitant]

REACTIONS (7)
  - BONE DENSITY DECREASED [None]
  - CALCINOSIS [None]
  - CONDITION AGGRAVATED [None]
  - INFLAMMATION [None]
  - MOBILITY DECREASED [None]
  - PAIN [None]
  - TENDON DISORDER [None]
